FAERS Safety Report 4428093-6 (Version None)
Quarter: 2004Q3

REPORT INFORMATION
  Report Type: 
  Country: None (occurrence: None)
  Receive Date: 20040813
  Receipt Date: 20040803
  Transmission Date: 20050211
  Serious: Yes (Hospitalization, Other)
  Sender: FDA-Public Use
  Company Number: 2004052733

PATIENT
  Age: 47 Year
  Sex: Female
  Weight: 56.246 kg

DRUGS (3)
  1. NEURONTIN [Suspect]
     Indication: NARCOLEPSY
     Dosage: ORAL
     Route: 048
     Dates: start: 20030101
  2. METHYLPHENIDATE HCL [Suspect]
     Indication: ILL-DEFINED DISORDER
  3. ALL OTHER THERAPEUTIC PRODUCTS [Suspect]
     Indication: ILL-DEFINED DISORDER
     Dates: start: 20040101, end: 20040101

REACTIONS (12)
  - ABNORMAL BEHAVIOUR [None]
  - AGITATION [None]
  - ANGER [None]
  - FEELING ABNORMAL [None]
  - HOMICIDAL IDEATION [None]
  - INSOMNIA [None]
  - MARITAL PROBLEM [None]
  - PARANOIA [None]
  - RELATIONSHIP BREAKDOWN [None]
  - THINKING ABNORMAL [None]
  - TREATMENT NONCOMPLIANCE [None]
  - VICTIM OF SPOUSAL ABUSE [None]
